FAERS Safety Report 6860744-9 (Version None)
Quarter: 2010Q3

REPORT INFORMATION
  Report Type: 
  Country: None (occurrence: None)
  Receive Date: 20100720
  Receipt Date: 20100707
  Transmission Date: 20110219
  Serious: Yes (Other)
  Sender: FDA-Public Use
  Company Number: PHHY2010US37418

PATIENT
  Sex: Male
  Weight: 64.4 kg

DRUGS (7)
  1. EXJADE [Suspect]
     Indication: SICKLE CELL ANAEMIA
     Dosage: 1250 MG, QD
     Route: 048
  2. EXJADE [Suspect]
     Dosage: 1050 MG, QD
     Route: 048
  3. MORPHINE SULFATE [Concomitant]
     Indication: PAIN
     Dosage: 15 MG, PRN
  4. FOLIC ACID [Concomitant]
     Dosage: 1 DF, QD
     Route: 048
  5. VITAMIN B [Concomitant]
  6. BLOOD TRANSFUSION [Concomitant]
  7. RED BLOOD CELLS [Concomitant]

REACTIONS (7)
  - CARDIAC MURMUR [None]
  - CARDIOMEGALY [None]
  - CHOLECYSTECTOMY [None]
  - DIARRHOEA [None]
  - HOT FLUSH [None]
  - PAIN [None]
  - PLATELET COUNT INCREASED [None]
